FAERS Safety Report 8924739 (Version 1)
Quarter: 2012Q4

REPORT INFORMATION
  Report Type: Spontaneous
  Country: US (occurrence: None)
  Receive Date: 20121116
  Receipt Date: 20121116
  Transmission Date: 20130627
  Serious: Yes (Life-Threatening, Other)
  Sender: FDA-Public Use
  Company Number: 001402531A

PATIENT
  Age: 71 Year
  Sex: Female

DRUGS (3)
  1. PROACTIV RENEWING CLEANSER [Suspect]
     Dosage: Once daily dermal
     Dates: start: 20121022
  2. PROACTIV REPAIRING TREATMENT [Suspect]
     Dosage: Once daily dermal
     Dates: start: 20121022
  3. PROACTIV REFINING MASK [Suspect]
     Dosage: Once daily dermal
     Dates: start: 20121022

REACTIONS (4)
  - Swelling face [None]
  - Urticaria [None]
  - Rash [None]
  - Dyspnoea [None]
